FAERS Safety Report 25728700 (Version 4)
Quarter: 2025Q4

REPORT INFORMATION
  Report Type: Spontaneous
  Country: AR (occurrence: AR)
  Receive Date: 20250826
  Receipt Date: 20251023
  Transmission Date: 20260117
  Serious: No
  Sender: PFIZER
  Company Number: AR-PFIZER INC-202500168065

PATIENT
  Age: 12 Year
  Sex: Male

DRUGS (2)
  1. GENOTROPIN [Suspect]
     Active Substance: SOMATROPIN
     Indication: Short stature
     Dosage: 1.8 MG, 6 TIMES A WEEK
     Dates: start: 20250627, end: 20250819
  2. GENOTROPIN [Suspect]
     Active Substance: SOMATROPIN
     Dosage: 1.8 MG, 6 TIMES A WEEK
     Dates: start: 20250820

REACTIONS (3)
  - Device breakage [Recovered/Resolved]
  - Device physical property issue [Recovered/Resolved]
  - Drug dose omission by device [Recovered/Resolved]

NARRATIVE: CASE EVENT DATE: 20250801
